FAERS Safety Report 18655458 (Version 2)
Quarter: 2021Q1

REPORT INFORMATION
  Report Type: Report from Study
  Country: None (occurrence: US)
  Receive Date: 20201223
  Receipt Date: 20210125
  Transmission Date: 20210419
  Serious: Yes (Other)
  Sender: FDA-Public Use
  Company Number: US-INSMED, INC.-US-INS-20-02048

PATIENT
  Age: 79 Year
  Sex: Female

DRUGS (2)
  1. ARIKAYCE [Suspect]
     Active Substance: AMIKACIN
     Route: 055
     Dates: end: 20210108
  2. ARIKAYCE [Suspect]
     Active Substance: AMIKACIN
     Indication: MYCOBACTERIUM AVIUM COMPLEX INFECTION
     Route: 055
     Dates: start: 20201028, end: 202012

REACTIONS (12)
  - Chest discomfort [Unknown]
  - Dizziness [Unknown]
  - Throat irritation [Unknown]
  - Fatigue [Unknown]
  - Product packaging difficult to open [Unknown]
  - Choking [Unknown]
  - Dysphonia [Unknown]
  - Throat tightness [Unknown]
  - Wheezing [Unknown]
  - Dyspnoea [Unknown]
  - Adverse drug reaction [Unknown]
  - Cough [Unknown]

NARRATIVE: CASE EVENT DATE: 2020
